FAERS Safety Report 26216623 (Version 1)
Quarter: 2025Q4

REPORT INFORMATION
  Report Type: Spontaneous
  Country: JP (occurrence: JP)
  Receive Date: 20251231
  Receipt Date: 20251231
  Transmission Date: 20260117
  Serious: Yes (Other)
  Sender: ROCHE
  Company Number: JP-CHUGAI-2025043010

PATIENT
  Sex: Male

DRUGS (1)
  1. CELLCEPT [Suspect]
     Active Substance: MYCOPHENOLATE MOFETIL
     Indication: Graft versus host disease
     Dosage: UNK
     Route: 048

REACTIONS (4)
  - Obliterative bronchiolitis [Unknown]
  - Atypical mycobacterial infection [Unknown]
  - Large intestine polyp [Unknown]
  - Gastric polyps [Recovered/Resolved]
